FAERS Safety Report 17846962 (Version 1)
Quarter: 2020Q2

REPORT INFORMATION
  Report Type: Spontaneous
  Country: BR (occurrence: BR)
  Receive Date: 20200601
  Receipt Date: 20200601
  Transmission Date: 20200714
  Serious: Yes (Other)
  Sender: FDA-Public Use
  Company Number: BR-GLENMARK PHARMACEUTICALS-2020GMK047858

PATIENT
  Age: 9 Year
  Sex: Female

DRUGS (1)
  1. FLUTICASONE PROPIONATE. [Suspect]
     Active Substance: FLUTICASONE PROPIONATE
     Indication: RHINITIS ALLERGIC
     Dosage: 50 MICROGRAM, QD (IN EACH NOSTRIL)
     Route: 045

REACTIONS (2)
  - Epstein-Barr virus infection reactivation [Unknown]
  - Oral hairy leukoplakia [Unknown]
